FAERS Safety Report 6208444-2 (Version None)
Quarter: 2009Q2

REPORT INFORMATION
  Report Type: 
  Country: None (occurrence: None)
  Receive Date: 20090529
  Receipt Date: 20090519
  Transmission Date: 20091009
  Serious: Yes (Hospitalization, Other)
  Sender: FDA-Public Use
  Company Number: US-ELI_LILLY_AND_COMPANY-US200901003854

PATIENT
  Age: 70 Year
  Sex: Female
  Weight: 81.633 kg

DRUGS (28)
  1. CYMBALTA [Suspect]
     Indication: DEPRESSION
     Dosage: 60 MG, DAILY (1/D)
     Route: 048
     Dates: start: 20080505, end: 20090101
  2. AMARYL [Concomitant]
     Dosage: 1 MG, EACH MORNING
     Route: 048
  3. CORTEF [Concomitant]
     Indication: BACK PAIN
     Dosage: 20 MG, EACH MORNING
  4. CORTEF [Concomitant]
     Dosage: 10 MG, EACH EVENING
  5. CORTEF [Concomitant]
     Dosage: 10 MG, EACH MORNING
  6. CORTEF [Concomitant]
     Dosage: 5 MG, EACH EVENING
  7. ALDACTONE [Concomitant]
     Dosage: 25 MG, 2/D
  8. LABETALOL HCL [Concomitant]
     Dosage: 200 MG, 2/D
     Route: 048
  9. NORVASC [Concomitant]
     Dosage: 10 MG, DAILY (1/D)
     Route: 048
  10. POTASSIUM CHLORIDE [Concomitant]
     Dosage: 20 MEQ, 2/D
     Route: 048
  11. XANAX [Concomitant]
     Indication: DYSKINESIA
     Dosage: 0.25 MG, 3/D
  12. XANAX [Concomitant]
     Dosage: 1 MG, AS NEEDED
  13. CALCIUM W/VITAMIN D NOS [Concomitant]
     Dosage: 1 D/F, 2/D
     Route: 048
  14. XOPENEX HFA [Concomitant]
     Indication: WHEEZING
     Dosage: 2 D/F, 4/D
  15. SIMVASTATIN [Concomitant]
     Dosage: 40 MG, EACH EVENING
     Route: 048
  16. CALTRATE + D [Concomitant]
     Dosage: UNK, 2/D
  17. PROMETHAZINE [Concomitant]
     Indication: NAUSEA
     Dosage: 1 D/F, AS NEEDED
     Route: 048
  18. OMEPRAZOLE [Concomitant]
     Dosage: 20 MG, DAILY (1/D)
     Route: 048
  19. DARVOCET-N 100 [Concomitant]
     Dosage: 1 D/F, AS NEEDED
  20. FERROUS SULFATE TAB [Concomitant]
     Dosage: 325 MG, DAILY (1/D)
     Route: 048
  21. SYNTHROID [Concomitant]
     Dosage: 75 UG, DAILY (1/D)
     Route: 048
  22. HYDROCHLOROTHIAZIDE [Concomitant]
     Dosage: 12.5 MG, DAILY (1/D)
     Route: 048
  23. CLONIDINE [Concomitant]
     Dosage: 0.1 MG, EACH EVENING
     Route: 048
  24. ZANTAC [Concomitant]
     Dosage: 150 MG, DAILY (1/D)
     Route: 048
  25. FUROSEMIDE [Concomitant]
     Dosage: 20 MG, 2/D
  26. OXYCODONE HCL [Concomitant]
     Dosage: 5 MG, AS NEEDED
  27. OXYCODONE HCL [Concomitant]
     Dosage: 5 MG, 2/D
     Route: 048
  28. LYRICA [Concomitant]
     Dosage: 100 MG, 3/D
     Route: 048

REACTIONS (3)
  - HAEMORRHAGE [None]
  - PITUITARY TUMOUR [None]
  - PITUITARY-DEPENDENT CUSHING'S SYNDROME [None]
